FAERS Safety Report 16214138 (Version 1)
Quarter: 2019Q2

REPORT INFORMATION
  Report Type: Spontaneous
  Country: NL (occurrence: PT)
  Receive Date: 20190418
  Receipt Date: 20190418
  Transmission Date: 20190711
  Serious: Yes (Death, Other)
  Sender: FDA-Public Use
  Company Number: PT-FRESENIUS KABI-FK201904292

PATIENT
  Age: 51 Year
  Sex: Male

DRUGS (5)
  1. CYTARABINE (MANUFACTURER UNKNOWN) [Suspect]
     Active Substance: CYTARABINE
     Indication: MYELODYSPLASTIC SYNDROME
     Dosage: UNK
     Route: 065
  2. AZACITIDINE. [Suspect]
     Active Substance: AZACITIDINE
     Indication: MYELODYSPLASTIC SYNDROME
     Dosage: 75 MG/M2, UNK (7 DAYS, EVERY 28 DAYS)
     Route: 058
     Dates: start: 201611
  3. AZACITIDINE. [Suspect]
     Active Substance: AZACITIDINE
     Dosage: 75 MG/M2, UNK (7 DAYS, EVERY 28 DAYS)
     Dates: start: 201701
  4. DAUNORUBICIN [Suspect]
     Active Substance: DAUNORUBICIN
     Indication: MYELODYSPLASTIC SYNDROME
     Dosage: UNK
     Route: 065
  5. ETOPOSIDE. [Suspect]
     Active Substance: ETOPOSIDE
     Indication: MYELODYSPLASTIC SYNDROME
     Dosage: UNK
     Route: 065

REACTIONS (8)
  - Malignant neoplasm progression [Fatal]
  - Acute leukaemia [Fatal]
  - Peau d^orange [Unknown]
  - White blood cell count decreased [Unknown]
  - Myelodysplastic syndrome [Fatal]
  - Febrile neutropenia [Unknown]
  - Fungal infection [Fatal]
  - Neutropenia [Unknown]

NARRATIVE: CASE EVENT DATE: 201706
